FAERS Safety Report 6592431-9 (Version None)
Quarter: 2010Q1

REPORT INFORMATION
  Report Type: 
  Country: None (occurrence: None)
  Receive Date: 20100221
  Receipt Date: 20091009
  Transmission Date: 20100710
  Serious: No
  Sender: FDA-Public Use
  Company Number: US-ALLERGAN-0914027US

PATIENT
  Age: 52 Year
  Sex: Female

DRUGS (2)
  1. BOTOX COSMETIC [Suspect]
     Indication: SKIN WRINKLING
     Dosage: 35 UNITS, SINGLE
     Route: 030
     Dates: start: 20090922, end: 20090922
  2. BOTOX COSMETIC [Suspect]
     Dosage: UNK
     Route: 030

REACTIONS (2)
  - DRY MOUTH [None]
  - SKIN TIGHTNESS [None]
